FAERS Safety Report 15356700 (Version 1)
Quarter: 2018Q3

REPORT INFORMATION
  Report Type: Spontaneous
  Country: US (occurrence: US)
  Receive Date: 20180830
  Receipt Date: 20180830
  Transmission Date: 20181010
  Serious: Yes (Hospitalization)
  Sender: FDA-Public Use
  Company Number: None

PATIENT
  Age: 63 Year
  Sex: Male

DRUGS (1)
  1. CYCLOSPORINE MODIFIED [Suspect]
     Active Substance: CYCLOSPORINE
     Indication: BONE MARROW TRANSPLANT
     Route: 048
     Dates: start: 201807

REACTIONS (4)
  - Therapy cessation [None]
  - Graft versus host disease [None]
  - Dehydration [None]
  - Clostridium difficile infection [None]

NARRATIVE: CASE EVENT DATE: 20180829
